FAERS Safety Report 19328292 (Version 1)
Quarter: 2021Q2

REPORT INFORMATION
  Report Type: Report from Study
  Country: CO (occurrence: CO)
  Receive Date: 20210528
  Receipt Date: 20210528
  Transmission Date: 20210717
  Serious: Yes (Other)
  Sender: FDA-Public Use
  Company Number: CO-TAKEDA-CO202014673

PATIENT
  Age: 6 Year
  Sex: Male
  Weight: 22 kg

DRUGS (4)
  1. HUMAN IMMUNOGLOBULIN; HYALURONIDASE [Suspect]
     Active Substance: HUMAN IMMUNOGLOBULIN G\HYALURONIDASE RECOMBINANT HUMAN
     Dosage: UNK
     Route: 058
     Dates: start: 20200627
  2. HUMAN IMMUNOGLOBULIN; HYALURONIDASE [Suspect]
     Active Substance: HUMAN IMMUNOGLOBULIN G\HYALURONIDASE RECOMBINANT HUMAN
     Dosage: AMPOULE OF 2.5 MG, MONTHLY
     Route: 058
     Dates: start: 20200624
  3. HUMAN IMMUNOGLOBULIN; HYALURONIDASE [Suspect]
     Active Substance: HUMAN IMMUNOGLOBULIN G\HYALURONIDASE RECOMBINANT HUMAN
     Indication: PRIMARY IMMUNODEFICIENCY SYNDROME
     Dosage: 15 GRAM, EVERY MONTH
     Route: 058
     Dates: start: 20200124
  4. ACETAMINOPHEN. [Concomitant]
     Active Substance: ACETAMINOPHEN
     Dosage: UNK
     Route: 065

REACTIONS (18)
  - Ear infection [Not Recovered/Not Resolved]
  - Oropharyngeal pain [Not Recovered/Not Resolved]
  - Constipation [Recovered/Resolved]
  - Dizziness [Recovered/Resolved]
  - Product dose omission issue [Unknown]
  - Weight increased [Unknown]
  - Ear pain [Unknown]
  - Arthralgia [Recovered/Resolved]
  - Headache [Not Recovered/Not Resolved]
  - Administration site pain [Recovering/Resolving]
  - Pain [Unknown]
  - Infusion site erythema [Recovering/Resolving]
  - Tympanic membrane perforation [Unknown]
  - Pleurisy [Not Recovered/Not Resolved]
  - Nasal congestion [Unknown]
  - Migraine [Recovered/Resolved]
  - Pyrexia [Not Recovered/Not Resolved]
  - Discouragement [Not Recovered/Not Resolved]

NARRATIVE: CASE EVENT DATE: 20200420
